FAERS Safety Report 22958945 (Version 2)
Quarter: 2025Q3

REPORT INFORMATION
  Report Type: Spontaneous
  Country: US (occurrence: US)
  Receive Date: 20230919
  Receipt Date: 20250728
  Transmission Date: 20251020
  Serious: Yes (Hospitalization, Other)
  Sender: GLAXOSMITHKLINE
  Company Number: US-GLAXOSMITHKLINE-US2023GSK128375

PATIENT
  Age: 28 Year
  Sex: Male

DRUGS (2)
  1. BUPROPION HYDROCHLORIDE XL [Suspect]
     Active Substance: BUPROPION HYDROCHLORIDE
     Indication: Product used for unknown indication
  2. OLANZAPINE [Suspect]
     Active Substance: OLANZAPINE
     Indication: Product used for unknown indication

REACTIONS (22)
  - Toxicity to various agents [Recovering/Resolving]
  - Cardiac failure [Unknown]
  - Ventricular tachycardia [Recovered/Resolved]
  - Loss of consciousness [Recovered/Resolved]
  - Dyskinesia [Recovered/Resolved]
  - Mydriasis [Unknown]
  - Sinus tachycardia [Recovered/Resolved]
  - Generalised tonic-clonic seizure [Recovered/Resolved]
  - Seizure [Recovered/Resolved]
  - Hypotension [Unknown]
  - Bundle branch block right [Unknown]
  - Bradycardia [Recovering/Resolving]
  - Cardiac arrest [Recovering/Resolving]
  - Pupillary reflex impaired [Unknown]
  - Cardiotoxicity [Recovering/Resolving]
  - Cardiogenic shock [Recovered/Resolved]
  - Cognitive disorder [Recovered/Resolved]
  - Neurotoxicity [Recovered/Resolved]
  - Cardiac dysfunction [Unknown]
  - Mental status changes [Unknown]
  - Intentional product misuse [Unknown]
  - Intentional overdose [Unknown]
